FAERS Safety Report 8406447-0 (Version None)
Quarter: 2012Q2

REPORT INFORMATION
  Report Type: 
  Country: None (occurrence: None)
  Receive Date: 20120604
  Receipt Date: 20120524
  Transmission Date: 20120825
  Serious: Yes (Hospitalization, Other)
  Sender: FDA-Public Use
  Company Number: ES-MPIJNJ-2011-01264

PATIENT

DRUGS (2)
  1. DEXAMETHASONE [Suspect]
     Indication: MULTIPLE MYELOMA
     Dosage: 40 MG, CYCLIC
     Route: 048
     Dates: start: 20100518, end: 20110212
  2. VELCADE [Suspect]
     Indication: MULTIPLE MYELOMA
     Dosage: 1.8 MG, CYCLIC
     Route: 042
     Dates: start: 20100518, end: 20110302

REACTIONS (3)
  - DELIRIUM [None]
  - PNEUMONIA [None]
  - RENAL FAILURE [None]
